FAERS Safety Report 14996131 (Version 3)
Quarter: 2019Q4

REPORT INFORMATION
  Report Type: Spontaneous
  Country: US (occurrence: US)
  Receive Date: 20180611
  Receipt Date: 20191111
  Transmission Date: 20200122
  Serious: Yes (Other)
  Sender: FDA-Public Use
  Company Number: US-PFIZER INC-2018235203

PATIENT
  Age: 68 Year
  Sex: Male

DRUGS (4)
  1. TESTOSTERONE CYPIONATE. [Concomitant]
     Active Substance: TESTOSTERONE CYPIONATE
     Indication: BLOOD TESTOSTERONE DECREASED
     Dosage: 200 MG, MONTHLY (ONCE A MONTH)
     Dates: start: 2002, end: 2016
  2. SOMA [Concomitant]
     Active Substance: CARISOPRODOL
     Indication: PAIN
     Dosage: UNK
     Dates: start: 2013, end: 2018
  3. VIAGRA [Suspect]
     Active Substance: SILDENAFIL CITRATE
     Indication: HYPOGONADISM
     Dosage: 100 MG, WEEKLY (ONCE A WEEK)
     Route: 048
     Dates: start: 20140212, end: 20140711
  4. CIALIS [Suspect]
     Active Substance: TADALAFIL
     Indication: HYPOGONADISM
     Dosage: 20 MG, WEEKLY (ONCE A WEEK)
     Route: 048
     Dates: start: 20130314, end: 20130827

REACTIONS (1)
  - Malignant melanoma stage IV [Unknown]

NARRATIVE: CASE EVENT DATE: 20160822
